FAERS Safety Report 6758726-0 (Version None)
Quarter: 2010Q2

REPORT INFORMATION
  Report Type: 
  Country: None (occurrence: None)
  Receive Date: 20100607
  Receipt Date: 20100527
  Transmission Date: 20101027
  Serious: Yes (Disabling)
  Sender: FDA-Public Use
  Company Number: US-MERCK-0812USA00504

PATIENT
  Age: 53 Year
  Sex: Female

DRUGS (9)
  1. FOSAMAX [Suspect]
     Indication: OSTEOPOROSIS
     Route: 048
     Dates: start: 20070101
  2. FOSAMAX PLUS D [Suspect]
     Indication: OSTEOPOROSIS
     Route: 048
     Dates: start: 20071101, end: 20080130
  3. ECOTRIN [Concomitant]
     Indication: CARDIAC DISORDER
     Route: 065
     Dates: start: 19980101
  4. ATENOLOL [Concomitant]
     Indication: HYPERTENSION
     Route: 065
     Dates: start: 19980101
  5. LIPITOR [Concomitant]
     Indication: BLOOD CHOLESTEROL INCREASED
     Route: 065
     Dates: start: 19980101
  6. HORMONES (UNSPECIFIED) [Concomitant]
     Route: 065
     Dates: start: 19700101
  7. PAROXETINE [Concomitant]
     Indication: NERVOUSNESS
     Route: 065
     Dates: start: 20060101
  8. SIMVASTATIN [Concomitant]
     Indication: BLOOD CHOLESTEROL INCREASED
     Route: 065
     Dates: start: 19980101
  9. TRAZODONE HYDROCHLORIDE [Concomitant]
     Indication: SLEEP DISORDER
     Route: 065
     Dates: start: 20070101

REACTIONS (24)
  - BACK PAIN [None]
  - CHEST PAIN [None]
  - DENTAL CARIES [None]
  - DRY EYE [None]
  - DRY MOUTH [None]
  - DYSPEPSIA [None]
  - DYSPNOEA [None]
  - FALL [None]
  - FIBROMYALGIA [None]
  - GASTROOESOPHAGEAL REFLUX DISEASE [None]
  - HERPES ZOSTER [None]
  - IMPAIRED HEALING [None]
  - MUSCULOSKELETAL DISCOMFORT [None]
  - ORAL INFECTION [None]
  - OSTEOARTHRITIS [None]
  - OSTEONECROSIS OF JAW [None]
  - POLYMYALGIA RHEUMATICA [None]
  - RASH [None]
  - RAYNAUD'S PHENOMENON [None]
  - SENILE OSTEOPOROSIS [None]
  - STOMATITIS [None]
  - SWELLING FACE [None]
  - TOOTH INFECTION [None]
  - UPPER RESPIRATORY TRACT INFECTION [None]
